FAERS Safety Report 14057790 (Version 1)
Quarter: 2017Q4

REPORT INFORMATION
  Report Type: Spontaneous
  Country: US (occurrence: US)
  Receive Date: 20171006
  Receipt Date: 20171006
  Transmission Date: 20180321
  Serious: Yes (Other)
  Sender: FDA-Public Use
  Company Number: US-GLAXOSMITHKLINE-US2017152283

PATIENT
  Sex: Male

DRUGS (1)
  1. NICODERM CQ [Suspect]
     Active Substance: NICOTINE
     Indication: PRODUCT USED FOR UNKNOWN INDICATION
     Dosage: 21 MG, UNK
     Dates: end: 20170929

REACTIONS (5)
  - Pain [Unknown]
  - Application site pain [Unknown]
  - Myocardial infarction [Unknown]
  - Drug ineffective [Unknown]
  - Cerebrovascular accident [Unknown]
